FAERS Safety Report 16839148 (Version 2)
Quarter: 2019Q4

REPORT INFORMATION
  Report Type: Report from Study
  Country: None (occurrence: FR)
  Receive Date: 20190923
  Receipt Date: 20191114
  Transmission Date: 20200122
  Serious: Yes (Death, Hospitalization, Other)
  Sender: FDA-Public Use
  Company Number: FR-ABBVIE-19K-056-2934118-00

PATIENT
  Age: 63 Year
  Sex: Male

DRUGS (1)
  1. DUODOPA [Suspect]
     Active Substance: CARBIDOPA\LEVODOPA
     Indication: PARKINSON^S DISEASE
     Dosage: STRENGTH 20 MG/ML 5 MG/ML
     Route: 050
     Dates: start: 20140922

REACTIONS (3)
  - Death [Fatal]
  - Infarction [Unknown]
  - Aspiration [Unknown]

NARRATIVE: CASE EVENT DATE: 20190915
